FAERS Safety Report 15266284 (Version 4)
Quarter: 2019Q2

REPORT INFORMATION
  Report Type: Spontaneous
  Country: US (occurrence: US)
  Receive Date: 20180810
  Receipt Date: 20190610
  Transmission Date: 20190711
  Serious: Yes (Hospitalization, Other)
  Sender: FDA-Public Use
  Company Number: US-PFIZER INC-2018320562

PATIENT
  Age: 56 Year
  Sex: Female

DRUGS (7)
  1. DEPO-MEDROL [Suspect]
     Active Substance: METHYLPREDNISOLONE ACETATE
     Indication: BACK PAIN
  2. DEPO-MEDROL [Suspect]
     Active Substance: METHYLPREDNISOLONE ACETATE
     Indication: INFECTION
  3. MOBIC [Concomitant]
     Active Substance: MELOXICAM
     Indication: MUSCULOSKELETAL PAIN
     Dosage: 7.5 MG, UNK
     Route: 048
     Dates: start: 20170817
  4. DEPO-MEDROL [Suspect]
     Active Substance: METHYLPREDNISOLONE ACETATE
     Indication: MUSCULOSKELETAL PAIN
     Dosage: 40 MG, UNK
     Route: 030
     Dates: start: 20170817
  5. MOBIC [Concomitant]
     Active Substance: MELOXICAM
     Indication: BACK PAIN
  6. TORADOL [Concomitant]
     Active Substance: KETOROLAC TROMETHAMINE
     Indication: BACK PAIN
  7. TORADOL [Concomitant]
     Active Substance: KETOROLAC TROMETHAMINE
     Indication: MUSCULOSKELETAL PAIN
     Dosage: 30 MG, UNK
     Route: 030
     Dates: start: 20170817

REACTIONS (7)
  - Suspected product contamination [Unknown]
  - Abscess [Unknown]
  - Nausea [Unknown]
  - Vomiting [Unknown]
  - Cellulitis [Unknown]
  - Product complaint [Unknown]
  - Scar [Unknown]

NARRATIVE: CASE EVENT DATE: 20170817
